FAERS Safety Report 10160326 (Version 3)
Quarter: 2014Q2

REPORT INFORMATION
  Report Type: Spontaneous
  Country: IT (occurrence: IT)
  Receive Date: 20140508
  Receipt Date: 20140509
  Transmission Date: 20141212
  Serious: Yes (Other)
  Sender: FDA-Public Use
  Company Number: IT-PFIZER INC-2014118343

PATIENT
  Age: 19 Year
  Sex: Male

DRUGS (2)
  1. ALPRAZOLAM [Suspect]
     Dosage: 2 MG, SINGLE
     Route: 048
     Dates: start: 20140409, end: 20140409
  2. ZOLPIDEM TARTRATE [Suspect]
     Dosage: 120 MG, SINGLE
     Route: 048
     Dates: start: 20140409, end: 20140409

REACTIONS (3)
  - Drug abuse [Recovering/Resolving]
  - Hypotension [Recovering/Resolving]
  - Somnolence [Recovering/Resolving]
